FAERS Safety Report 11050855 (Version 1)
Quarter: 2015Q2

REPORT INFORMATION
  Report Type: Spontaneous
  Country: US (occurrence: None)
  Receive Date: 20150420
  Receipt Date: 20150420
  Transmission Date: 20150821
  Serious: Yes (Other)
  Sender: FDA-Public Use
  Company Number: None

PATIENT
  Age: 70 Year
  Sex: Female
  Weight: 77.11 kg

DRUGS (11)
  1. IRON [Concomitant]
     Active Substance: IRON
  2. SYMBICORT [Suspect]
     Active Substance: BUDESONIDE\FORMOTEROL FUMARATE DIHYDRATE
     Indication: CHRONIC OBSTRUCTIVE PULMONARY DISEASE
     Dosage: ONE PUFF BY MOUTH TWICE DAILY, TWICE DAILY, TAKEN BY MOUTH
     Route: 048
     Dates: start: 20150318, end: 20150408
  3. METFORMIN [Concomitant]
     Active Substance: METFORMIN HYDROCHLORIDE
  4. ATORVASTATIN [Concomitant]
     Active Substance: ATORVASTATIN
  5. OXYBUTYNIN [Concomitant]
     Active Substance: OXYBUTYNIN
  6. ROPINIROLE. [Concomitant]
     Active Substance: ROPINIROLE
  7. MAGNESIUM WITH CHELATED ZINK [Concomitant]
  8. CINNAMON. [Concomitant]
     Active Substance: CINNAMON
  9. AMLODIPINE BESYLATE. [Concomitant]
     Active Substance: AMLODIPINE BESYLATE
  10. CALCIUM CHEWS WITH VITAMIN D AND K [Concomitant]
  11. GARLIC. [Concomitant]
     Active Substance: GARLIC

REACTIONS (4)
  - Loss of control of legs [None]
  - Abasia [None]
  - Fall [None]
  - Balance disorder [None]

NARRATIVE: CASE EVENT DATE: 20150407
